FAERS Safety Report 9945040 (Version 1)
Quarter: 2014Q1

REPORT INFORMATION
  Report Type: Report from Study
  Country: US (occurrence: US)
  Receive Date: 20140303
  Receipt Date: 20140303
  Transmission Date: 20141002
  Serious: No
  Sender: FDA-Public Use
  Company Number: US-ABBVIE-13P-163-1054133-00

PATIENT
  Age: 24 Year
  Sex: Male

DRUGS (5)
  1. HUMIRA [Suspect]
     Indication: PSORIATIC ARTHROPATHY
     Dates: start: 201112, end: 201203
  2. HUMIRA [Suspect]
  3. CLOBEX [Concomitant]
     Indication: PSORIASIS
     Dosage: SPRAY
  4. CLOBETASOL PROPIONATE [Concomitant]
     Indication: PSORIASIS
  5. TOPICAL MEDICATION [Concomitant]
     Indication: PRODUCT USED FOR UNKNOWN INDICATION
     Route: 061

REACTIONS (1)
  - Psoriatic arthropathy [Not Recovered/Not Resolved]
